FAERS Safety Report 7968647-3 (Version None)
Quarter: 2011Q4

REPORT INFORMATION
  Report Type: 
  Country: None (occurrence: None)
  Receive Date: 20111209
  Receipt Date: 20111202
  Transmission Date: 20120403
  Serious: Yes (Other)
  Sender: FDA-Public Use
  Company Number: US-GLAXOSMITHKLINE-A0953461A

PATIENT
  Age: 62 Year
  Sex: Female
  Weight: 72.7 kg

DRUGS (12)
  1. NARDIL [Concomitant]
     Indication: DEPRESSION
     Dosage: 30MG TWICE PER DAY
     Route: 065
     Dates: start: 20101228
  2. PAXIL [Suspect]
     Indication: DEPRESSION
     Route: 065
  3. PROZAC [Concomitant]
     Indication: DEPRESSION
     Route: 065
  4. PAMELOR [Concomitant]
     Indication: DEPRESSION
     Route: 065
  5. ABILIFY [Concomitant]
     Indication: DEPRESSION
     Route: 065
  6. WELLBUTRIN [Suspect]
     Indication: DEPRESSION
     Route: 065
  7. CYMBALTA [Suspect]
     Indication: DEPRESSION
     Route: 065
  8. ZOLOFT [Concomitant]
     Indication: DEPRESSION
     Route: 065
  9. PRISTIQ [Concomitant]
     Indication: DEPRESSION
     Route: 065
  10. ALDARA [Suspect]
     Indication: PRECANCEROUS CELLS PRESENT
     Route: 065
  11. AMBIEN [Concomitant]
     Indication: SLEEP DISORDER
     Dosage: 10MG PER DAY
  12. REMERON [Concomitant]
     Indication: DEPRESSION
     Route: 065

REACTIONS (3)
  - OEDEMA PERIPHERAL [None]
  - DRUG INEFFECTIVE [None]
  - THROMBOSIS [None]
